FAERS Safety Report 12700005 (Version 2)
Quarter: 2016Q3

REPORT INFORMATION
  Report Type: Report from Study
  Country: PL (occurrence: PL)
  Receive Date: 20160830
  Receipt Date: 20160908
  Transmission Date: 20161109
  Serious: Yes (Hospitalization, Other)
  Sender: FDA-Public Use
  Company Number: PL-REGENERON PHARMACEUTICALS, INC.-2016-20998

PATIENT

DRUGS (15)
  1. EYLEA [Suspect]
     Active Substance: AFLIBERCEPT
     Dosage: TREATMENT WEEK 16, 50 ?L, UNK (IAST EYLEA INJECTION PRIOR TO THE EVENT). TOTAL OF 5 DOSES RECEIVED.
     Route: 031
     Dates: start: 20160620, end: 20160620
  2. TRAUMON [Concomitant]
     Indication: PAIN IN EXTREMITY
     Dosage: 100 MG, UNK
     Route: 061
     Dates: start: 201501
  3. LIGNOCAINE                         /00033401/ [Concomitant]
     Active Substance: LIDOCAINE HYDROCHLORIDE
     Indication: ANAESTHESIA
     Dosage: TOTAL DAILY DOSE ONCE  DAY
     Route: 061
     Dates: start: 201603
  4. RAMIPRIL. [Concomitant]
     Active Substance: RAMIPRIL
     Indication: PRODUCT USED FOR UNKNOWN INDICATION
     Dosage: UNK, QD
  5. TROPICAMIDE. [Concomitant]
     Active Substance: TROPICAMIDE
     Indication: MYDRIASIS
     Dosage: TOTAL DAILY DOSE ONCE A DAY
     Route: 061
     Dates: start: 201603
  6. BETADINE [Concomitant]
     Active Substance: POVIDONE-IODINE
     Indication: INFECTION PROPHYLAXIS
     Dosage: TOTAL DAILY DOSE ONCE A DAY
     Route: 061
     Dates: start: 201603
  7. EYLEA [Suspect]
     Active Substance: AFLIBERCEPT
     Dosage: TREATMENT WEEK 4, 50 MICROLITRES, UNK
     Route: 031
     Dates: start: 20160401, end: 20160401
  8. VIGAMOX [Concomitant]
     Active Substance: MOXIFLOXACIN HYDROCHLORIDE
     Indication: ANTIBIOTIC PROPHYLAXIS
     Dosage: 4 X 5MG/ML
     Route: 061
     Dates: start: 201603
  9. ALCAINE [Concomitant]
     Active Substance: PROPARACAINE HYDROCHLORIDE
     Indication: ANAESTHESIA
     Dosage: TOTAL DAILY DOSE THREE TIMES A DAY
     Route: 061
     Dates: start: 201603
  10. EYLEA [Suspect]
     Active Substance: AFLIBERCEPT
     Dosage: TREATMENT WEEK 12, 50 MICROLITRES, UNK
     Route: 031
     Dates: start: 20160525, end: 20160525
  11. AMLODIPINE BESILATE [Concomitant]
     Active Substance: AMLODIPINE BESYLATE
     Indication: PRODUCT USED FOR UNKNOWN INDICATION
     Dosage: UNK UNK, QD
     Dates: start: 20160731, end: 20160808
  12. EYLEA [Suspect]
     Active Substance: AFLIBERCEPT
     Indication: DIABETIC RETINAL OEDEMA
     Dosage: TREATMENT WEEK 1, 50 MICROLITRES, UNK
     Route: 031
     Dates: start: 20160304, end: 20160304
  13. EYLEA [Suspect]
     Active Substance: AFLIBERCEPT
     Dosage: TREATMENT WEEK 8, 50 MICROLITRES, UNK
     Route: 031
     Dates: start: 20160429, end: 20160429
  14. METFORMIN HYDROCHLORIDE. [Concomitant]
     Active Substance: METFORMIN HYDROCHLORIDE
     Indication: DIABETES MELLITUS
     Dosage: 850 MG, BID
     Route: 048
     Dates: start: 201505
  15. AGEN [Concomitant]
     Indication: HYPERTENSION
     Dosage: 5 MG, UNK
     Route: 048
     Dates: start: 2008

REACTIONS (3)
  - Diabetic nephropathy [Recovered/Resolved]
  - Diabetic foot [Recovered/Resolved]
  - Infected skin ulcer [Recovered/Resolved]

NARRATIVE: CASE EVENT DATE: 20160731
